FAERS Safety Report 16303069 (Version 1)
Quarter: 2019Q2

REPORT INFORMATION
  Report Type: Spontaneous
  Country: US (occurrence: US)
  Receive Date: 20190405
  Receipt Date: 20190405
  Transmission Date: 20190711
  Serious: Yes (Hospitalization)
  Sender: FDA-Public Use
  Company Number: None

PATIENT
  Age: 23 Year
  Sex: Female
  Weight: 81.5 kg

DRUGS (6)
  1. DAUNORUBICIN [Suspect]
     Active Substance: DAUNORUBICIN
     Dates: end: 20190322
  2. VINCRISTINE SULFATE. [Suspect]
     Active Substance: VINCRISTINE SULFATE
     Dates: end: 20190322
  3. PREDNISONE. [Suspect]
     Active Substance: PREDNISONE
     Dates: end: 20190323
  4. METHOTREXATE. [Suspect]
     Active Substance: METHOTREXATE
     Dates: end: 20190307
  5. CYTARABINE. [Suspect]
     Active Substance: CYTARABINE
     Dates: end: 20190228
  6. ONCASPAR [Suspect]
     Active Substance: PEGASPARGASE
     Dates: end: 20190303

REACTIONS (3)
  - Conversion disorder [None]
  - Posterior reversible encephalopathy syndrome [None]
  - Febrile neutropenia [None]

NARRATIVE: CASE EVENT DATE: 20190324
